FAERS Safety Report 18121971 (Version 5)
Quarter: 2020Q4

REPORT INFORMATION
  Report Type: Spontaneous
  Country: US (occurrence: US)
  Receive Date: 20200807
  Receipt Date: 20201008
  Transmission Date: 20210113
  Serious: No
  Sender: FDA-Public Use
  Company Number: US-GLAXOSMITHKLINE-US2020AMR148531

PATIENT
  Sex: Female

DRUGS (3)
  1. ZEJULA [Suspect]
     Active Substance: NIRAPARIB
     Indication: OVARIAN CANCER
     Dosage: 200 MG, QD
     Route: 048
     Dates: start: 20200709
  2. ZEJULA [Suspect]
     Active Substance: NIRAPARIB
     Dosage: 200 MG, QD
     Route: 048
     Dates: start: 20200717
  3. ZEJULA [Suspect]
     Active Substance: NIRAPARIB
     Dosage: 200 MG, QD
     Route: 048

REACTIONS (21)
  - Restlessness [Unknown]
  - Product dose omission issue [Unknown]
  - Bone pain [Unknown]
  - Nasal congestion [Unknown]
  - Insomnia [Unknown]
  - Back pain [Not Recovered/Not Resolved]
  - Dysgeusia [Unknown]
  - Inappropriate schedule of product administration [Unknown]
  - Oropharyngeal pain [Unknown]
  - Vomiting [Unknown]
  - Off label use [Unknown]
  - Malaise [Unknown]
  - Drug hypersensitivity [Unknown]
  - Adverse drug reaction [Unknown]
  - Nasopharyngitis [Unknown]
  - Back disorder [Not Recovered/Not Resolved]
  - Anxiety [Unknown]
  - Gait inability [Unknown]
  - Headache [Unknown]
  - Platelet count decreased [Unknown]
  - Stomatitis [Unknown]
